FAERS Safety Report 10477239 (Version 2)
Quarter: 2014Q4

REPORT INFORMATION
  Report Type: Spontaneous
  Country: GB (occurrence: GB)
  Receive Date: 20140926
  Receipt Date: 20141001
  Transmission Date: 20150528
  Serious: Yes (Other)
  Sender: FDA-Public Use
  Company Number: GB-DRREDDYS-GER/UKI/14/0043223

PATIENT
  Sex: Female

DRUGS (5)
  1. FRISIUM [Suspect]
     Active Substance: CLOBAZAM
     Indication: EPILEPSY
     Route: 048
  2. ERYTHROMYCIN. [Suspect]
     Active Substance: ERYTHROMYCIN
     Indication: PRODUCT USED FOR UNKNOWN INDICATION
  3. OMEPRAZOLE. [Suspect]
     Active Substance: OMEPRAZOLE
     Indication: GASTROOESOPHAGEAL REFLUX DISEASE
  4. NEURONTIN [Suspect]
     Active Substance: GABAPENTIN
     Indication: EPILEPSY
  5. FRISIUM [Suspect]
     Active Substance: CLOBAZAM
     Route: 048

REACTIONS (6)
  - Infection [Unknown]
  - Epilepsy [Not Recovered/Not Resolved]
  - Confusional state [Unknown]
  - Hyperhidrosis [Not Recovered/Not Resolved]
  - Dry mouth [Unknown]
  - Fatigue [Not Recovered/Not Resolved]

NARRATIVE: CASE EVENT DATE: 20140914
